FAERS Safety Report 8978980 (Version 1)
Quarter: 2012Q4

REPORT INFORMATION
  Report Type: Spontaneous
  Country: US (occurrence: None)
  Receive Date: 20121218
  Receipt Date: 20121218
  Transmission Date: 20130627
  Serious: Yes (Hospitalization)
  Sender: FDA-Public Use
  Company Number: None

PATIENT
  Age: 62 Year
  Sex: Male
  Weight: 89.5 kg

DRUGS (2)
  1. CLOPIDOGREL [Suspect]
     Route: 048
     Dates: start: 20060315, end: 20121214
  2. ASPIRIN [Suspect]
     Route: 048

REACTIONS (2)
  - Anaemia [None]
  - Gastric haemorrhage [None]
